FAERS Safety Report 21953198 (Version 1)
Quarter: 2023Q1

REPORT INFORMATION
  Report Type: Report from Study
  Country: US (occurrence: US)
  Receive Date: 20230204
  Receipt Date: 20230204
  Transmission Date: 20230418
  Serious: Yes (Other)
  Sender: FDA-Public Use
  Company Number: US-002147023-NVSC2023US020152

PATIENT
  Age: 39 Year
  Sex: Female

DRUGS (2)
  1. GLEEVEC [Suspect]
     Active Substance: IMATINIB MESYLATE
     Indication: COVID-19
     Dosage: 400 MG
     Route: 048
     Dates: start: 20200805, end: 20221206
  2. GLEEVEC [Suspect]
     Active Substance: IMATINIB MESYLATE
     Indication: Eye haemorrhage

REACTIONS (3)
  - Eye haemorrhage [Unknown]
  - COVID-19 [Unknown]
  - Product use in unapproved indication [Unknown]

NARRATIVE: CASE EVENT DATE: 20230127
